FAERS Safety Report 18980538 (Version 2)
Quarter: 2021Q1

REPORT INFORMATION
  Report Type: Spontaneous
  Country: GB (occurrence: GB)
  Receive Date: 20210308
  Receipt Date: 20210329
  Transmission Date: 20210420
  Serious: Yes (Death, Other)
  Sender: FDA-Public Use
  Company Number: GB-MYLANLABS-2021M1014059

PATIENT
  Age: 50 Year
  Sex: Male

DRUGS (4)
  1. PROCYCLIDINE [Concomitant]
     Active Substance: PROCYCLIDINE
     Dosage: 10 MILLIGRAM
     Route: 048
     Dates: start: 2005
  2. AMISULPRIDE [Concomitant]
     Active Substance: AMISULPRIDE
     Dosage: 600 MILLIGRAM
     Route: 048
     Dates: start: 2005
  3. FLUOXETINE [Concomitant]
     Active Substance: FLUOXETINE HYDROCHLORIDE
     Dosage: 20 MILLIGRAM
     Route: 048
     Dates: start: 2005
  4. CLOZARIL [Suspect]
     Active Substance: CLOZAPINE
     Indication: SCHIZOPHRENIA
     Dosage: 300 MILLIGRAM, QD  (100 MG AM, 200 MG PM)
     Route: 048
     Dates: start: 20050213

REACTIONS (2)
  - Death [Fatal]
  - Cardiac arrest [Unknown]

NARRATIVE: CASE EVENT DATE: 20210304
